FAERS Safety Report 4392874-8 (Version None)
Quarter: 2004Q3

REPORT INFORMATION
  Report Type: 
  Country: None (occurrence: None)
  Receive Date: 20040708
  Receipt Date: 20040630
  Transmission Date: 20050211
  Serious: Yes (Hospitalization)
  Sender: FDA-Public Use
  Company Number: US-MERCK-0407USA00120

PATIENT

DRUGS (1)
  1. INVANZ [Suspect]
     Route: 051

REACTIONS (1)
  - LIVER FUNCTION TEST ABNORMAL [None]
